FAERS Safety Report 23668829 (Version 1)
Quarter: 2024Q1

REPORT INFORMATION
  Report Type: Spontaneous
  Country: US (occurrence: US)
  Receive Date: 20240325
  Receipt Date: 20240325
  Transmission Date: 20240410
  Serious: No
  Sender: FDA-Public Use
  Company Number: US-Harrow Eye-2154785

PATIENT
  Age: 69 Year
  Sex: Female

DRUGS (1)
  1. VEVYE [Suspect]
     Active Substance: CYCLOSPORINE
     Indication: Dry eye
     Route: 047
     Dates: start: 20240223, end: 20240229

REACTIONS (3)
  - Vision blurred [Recovering/Resolving]
  - Condition aggravated [Unknown]
  - Headache [Unknown]
